FAERS Safety Report 12766996 (Version 3)
Quarter: 2016Q4

REPORT INFORMATION
  Report Type: Spontaneous
  Country: DE (occurrence: DE)
  Receive Date: 20160921
  Receipt Date: 20161216
  Transmission Date: 20170207
  Serious: Yes (Other)
  Sender: FDA-Public Use
  Company Number: DE-PFIZER INC-2016432619

PATIENT
  Age: 56 Year
  Sex: Male

DRUGS (2)
  1. AMLODIPINE BESILATE [Suspect]
     Active Substance: AMLODIPINE BESYLATE
     Indication: HYPERTENSION
     Dosage: 2.5 MG, UNK
     Route: 048
     Dates: start: 2016
  2. RAMILICH [Suspect]
     Active Substance: RAMIPRIL
     Indication: HYPERTENSION
     Dosage: 2.5 MG, DAILY
     Route: 048
     Dates: start: 20151007

REACTIONS (4)
  - Visual impairment [Not Recovered/Not Resolved]
  - Visual impairment [Unknown]
  - Cataract [Unknown]
  - Glaucoma [Unknown]

NARRATIVE: CASE EVENT DATE: 2015
